FAERS Safety Report 6367394-1 (Version None)
Quarter: 2009Q3

REPORT INFORMATION
  Report Type: 
  Country: None (occurrence: None)
  Receive Date: 20090921
  Receipt Date: 20090914
  Transmission Date: 20100115
  Serious: Yes (Life-Threatening)
  Sender: FDA-Public Use
  Company Number: A0805373A

PATIENT
  Age: 50 Year
  Sex: Female

DRUGS (1)
  1. ALTABAX [Suspect]
     Indication: NAIL INFECTION
     Dosage: 1APP SINGLE DOSE
     Route: 061
     Dates: start: 20090801, end: 20090801

REACTIONS (7)
  - DRUG ERUPTION [None]
  - DYSPHONIA [None]
  - DYSPNOEA [None]
  - FEELING HOT [None]
  - HYPERSENSITIVITY [None]
  - MALAISE [None]
  - THROAT TIGHTNESS [None]
